FAERS Safety Report 9830507 (Version 3)
Quarter: 2014Q4

REPORT INFORMATION
  Report Type: Spontaneous
  Country: US (occurrence: US)
  Receive Date: 20140120
  Receipt Date: 20141222
  Transmission Date: 20150529
  Serious: Yes (Death, Life-Threatening, Hospitalization, Other)
  Sender: FDA-Public Use
  Company Number: US-MERCK-1401USA007728

PATIENT
  Sex: Female
  Weight: 71.2 kg

DRUGS (3)
  1. ACTOPLUS MET [Concomitant]
     Active Substance: METFORMIN HYDROCHLORIDE\PIOGLITAZONE HYDROCHLORIDE
     Indication: TYPE 2 DIABETES MELLITUS
     Dosage: 15/850 MG, BID
     Dates: start: 20061026
  2. JANUVIA [Suspect]
     Active Substance: SITAGLIPTIN PHOSPHATE
     Dosage: 100 MG, BID
     Route: 048
     Dates: start: 20070315, end: 20110601
  3. JANUVIA [Suspect]
     Active Substance: SITAGLIPTIN PHOSPHATE
     Indication: TYPE 2 DIABETES MELLITUS
     Dosage: 100 MG, QD
     Route: 048
     Dates: start: 20061026, end: 20110502

REACTIONS (49)
  - Myocardial infarction [Recovered/Resolved]
  - Septic shock [Unknown]
  - Panic attack [Unknown]
  - Coronary artery disease [Unknown]
  - Incisional hernia repair [Unknown]
  - Neck pain [Unknown]
  - Oedema peripheral [Unknown]
  - Gastrooesophageal reflux disease [Not Recovered/Not Resolved]
  - Arthralgia [Unknown]
  - Metastases to adrenals [Unknown]
  - Metastases to liver [Unknown]
  - Respiratory failure [Fatal]
  - Hypertension [Unknown]
  - Depression [Unknown]
  - Adverse event [Unknown]
  - Incisional hernia [Unknown]
  - Nervousness [Unknown]
  - Oral candidiasis [Unknown]
  - Hyperkalaemia [Unknown]
  - Arthritis [Unknown]
  - Neuropathy peripheral [Unknown]
  - Oedema [Unknown]
  - Nausea [Not Recovered/Not Resolved]
  - Vomiting [Not Recovered/Not Resolved]
  - Pancreatic carcinoma metastatic [Fatal]
  - Multi-organ failure [Fatal]
  - Extranodal marginal zone B-cell lymphoma (MALT type) [Unknown]
  - Chest discomfort [Unknown]
  - Incisional hernia [Unknown]
  - Insulin-requiring type 2 diabetes mellitus [Unknown]
  - Cough [Unknown]
  - Constipation [Unknown]
  - Coronary artery bypass [Unknown]
  - Malignant pleural effusion [Unknown]
  - Metastases to peritoneum [Unknown]
  - Ulcer [Not Recovered/Not Resolved]
  - Chest pain [Unknown]
  - Arthritis allergic [Unknown]
  - Muscle strain [Unknown]
  - Spider naevus [Unknown]
  - Chronic obstructive pulmonary disease [Unknown]
  - Hernia [Unknown]
  - Pleural effusion [Unknown]
  - Wheezing [Unknown]
  - Gastritis [Unknown]
  - Inappropriate schedule of drug administration [Unknown]
  - Diabetes mellitus inadequate control [Unknown]
  - Anxiety [Unknown]
  - Back pain [Unknown]

NARRATIVE: CASE EVENT DATE: 20061218
